FAERS Safety Report 8265741-7 (Version None)
Quarter: 2012Q2

REPORT INFORMATION
  Report Type: 
  Country: None (occurrence: None)
  Receive Date: 20120406
  Receipt Date: 20120405
  Transmission Date: 20120825
  Serious: Yes (Death)
  Sender: FDA-Public Use
  Company Number: JP-SANOFI-AVENTIS-2012SA023958

PATIENT
  Age: 73 Year
  Sex: Male
  Weight: 49 kg

DRUGS (16)
  1. OXALIPLATIN [Suspect]
     Route: 041
     Dates: start: 20110915, end: 20110915
  2. OXALIPLATIN [Suspect]
     Route: 041
     Dates: start: 20111111, end: 20111111
  3. OXALIPLATIN [Suspect]
     Route: 041
     Dates: start: 20111209, end: 20111209
  4. SOLU-MEDROL [Concomitant]
  5. OXALIPLATIN [Suspect]
     Route: 041
     Dates: start: 20111125, end: 20111125
  6. OXALIPLATIN [Suspect]
     Route: 041
     Dates: start: 20111226, end: 20111226
  7. ALOXI [Concomitant]
     Dates: start: 20110915, end: 20111226
  8. OXALIPLATIN [Suspect]
     Indication: COLON CANCER
     Route: 041
     Dates: start: 20110902, end: 20110902
  9. LEUCOVORIN CALCIUM [Concomitant]
  10. FLUOROURACIL [Concomitant]
     Dates: start: 20110902, end: 20120125
  11. DECADRON [Concomitant]
  12. OXALIPLATIN [Suspect]
     Route: 041
     Dates: start: 20110930, end: 20110930
  13. OXALIPLATIN [Suspect]
     Route: 041
     Dates: start: 20111028, end: 20111028
  14. OXALIPLATIN [Suspect]
     Route: 041
     Dates: start: 20120110, end: 20120110
  15. GRANISETRON [Concomitant]
  16. OXALIPLATIN [Suspect]
     Route: 041
     Dates: start: 20120124, end: 20120124

REACTIONS (3)
  - NEUROPATHY PERIPHERAL [None]
  - NAUSEA [None]
  - DEATH [None]
